FAERS Safety Report 11523644 (Version 1)
Quarter: 2015Q3

REPORT INFORMATION
  Report Type: Spontaneous
  Country: US (occurrence: US)
  Receive Date: 20150903
  Receipt Date: 20150903
  Transmission Date: 20151125
  Serious: No
  Sender: FDA-Public Use
  Company Number: US-ELI_LILLY_AND_COMPANY-US201303006205

PATIENT
  Sex: Female

DRUGS (5)
  1. PROMETHAZINE [Concomitant]
     Active Substance: PROMETHAZINE\PROMETHAZINE HYDROCHLORIDE
     Indication: NAUSEA
     Dosage: UNK, UNKNOWN
     Route: 065
  2. CYMBALTA [Suspect]
     Active Substance: DULOXETINE HYDROCHLORIDE
     Indication: NEURALGIA
     Dosage: UNK, QD (LOWEST DOSE. WHATEVER IS RECOMMENDED, MAY BE ONCE A DAY)
     Route: 065
     Dates: start: 2009
  3. HYDROCODONE [Concomitant]
     Active Substance: HYDROCODONE
     Indication: ARTHRITIS
     Dosage: 10 MG, UNKNOWN
     Route: 065
     Dates: start: 2009
  4. VITAMINS [Concomitant]
     Active Substance: VITAMINS
     Dosage: UNK, UNKNOWN
     Route: 065
  5. ORFENADRINA                        /00018301/ [Concomitant]
     Dosage: UNK, UNKNOWN
     Route: 065
     Dates: start: 201212

REACTIONS (6)
  - Myoclonus [Recovering/Resolving]
  - Cerebral disorder [Unknown]
  - Muscle twitching [Recovering/Resolving]
  - Sleep disorder [Unknown]
  - Memory impairment [Unknown]
  - Pain [Recovering/Resolving]
